FAERS Safety Report 13153306 (Version 3)
Quarter: 2017Q2

REPORT INFORMATION
  Report Type: Report from Study
  Country: JP (occurrence: JP)
  Receive Date: 20170126
  Receipt Date: 20170427
  Transmission Date: 20170830
  Serious: Yes (Hospitalization, Other)
  Sender: FDA-Public Use
  Company Number: JP-ASTELLAS-2017JP000836AA

PATIENT
  Age: 35 Year
  Sex: Female
  Weight: 55 kg

DRUGS (3)
  1. LUTORAL [Concomitant]
     Active Substance: CHLORMADINONE ACETATE
     Indication: INFERTILITY FEMALE
     Route: 048
     Dates: start: 20141227, end: 20150109
  2. BUFFERIN [Concomitant]
     Active Substance: ASPIRIN
     Indication: INFERTILITY FEMALE
     Route: 048
     Dates: start: 20141228
  3. TACROLIMUS. [Suspect]
     Active Substance: TACROLIMUS
     Indication: INFERTILITY FEMALE
     Route: 048
     Dates: start: 20141226, end: 20150808

REACTIONS (4)
  - Maternal exposure during pregnancy [Unknown]
  - Premature delivery [Unknown]
  - Off label use [Unknown]
  - Twin pregnancy [Recovered/Resolved]

NARRATIVE: CASE EVENT DATE: 20141226
